FAERS Safety Report 7367020-9 (Version None)
Quarter: 2011Q1

REPORT INFORMATION
  Report Type: 
  Country: None (occurrence: None)
  Receive Date: 20110322
  Receipt Date: 20110309
  Transmission Date: 20110831
  Serious: Yes (Other)
  Sender: FDA-Public Use
  Company Number: US-JNJFOC-20110304573

PATIENT
  Age: 36 Year
  Sex: Female

DRUGS (3)
  1. ZYRTEC [Concomitant]
     Indication: MULTIPLE ALLERGIES
     Route: 048
  2. INHALER (UNSPECIFIED) [Concomitant]
     Indication: MULTIPLE ALLERGIES
     Route: 055
  3. REMICADE [Suspect]
     Indication: CROHN'S DISEASE
     Route: 042

REACTIONS (1)
  - BREAST CANCER [None]
